FAERS Safety Report 5283737-4 (Version None)
Quarter: 2007Q2

REPORT INFORMATION
  Report Type: 
  Country: None (occurrence: None)
  Receive Date: 20070402
  Receipt Date: 20070319
  Transmission Date: 20071010
  Serious: Yes (Hospitalization)
  Sender: FDA-Public Use
  Company Number: FR-ROCHE-465263

PATIENT
  Age: 1 Day
  Sex: Male
  Weight: 2.6 kg

DRUGS (1)
  1. VALIUM [Suspect]
     Indication: DRUG USE FOR UNKNOWN INDICATION
     Dosage: DOSAGE REGIMEN ONE DOSE PER DAY.
     Dates: start: 20060530, end: 20060615

REACTIONS (4)
  - FEEDING DISORDER NEONATAL [None]
  - HYPOTONIA [None]
  - MALAISE [None]
  - SOMNOLENCE [None]
